FAERS Safety Report 5522032-2 (Version None)
Quarter: 2007Q4

REPORT INFORMATION
  Report Type: 
  Country: None (occurrence: None)
  Receive Date: 20071115
  Receipt Date: 20071102
  Transmission Date: 20080405
  Serious: Yes (Hospitalization, Other)
  Sender: FDA-Public Use
  Company Number: 2007-04652

PATIENT
  Age: 57 Year
  Sex: Male
  Weight: 94.3 kg

DRUGS (8)
  1. PREDNISONE [Suspect]
     Indication: CROHN'S DISEASE
     Dosage: 5 MG, DAILY (LONGER TAPER), ORAL
     Route: 048
  2. PREDNISONE TAB [Suspect]
     Indication: CROHN'S DISEASE
     Dosage: 10-40 MG, DAILY TAPER TO 5MG, ORAL
     Route: 048
     Dates: start: 19690101
  3. ZYPREXA [Suspect]
     Indication: DEPRESSION
  4. LEXAPRO [Suspect]
     Indication: DEPRESSION
  5. PENTASA ^PHARMACIA^ (MESALAZINE) [Concomitant]
  6. LOPERAMIDE [Concomitant]
  7. MULTIVITAMINS (RETINOL, RIBOFLAVIN, NICOTINAMIDE, PANTHENOL) [Concomitant]
  8. FISH OIL (FISH OIL) [Concomitant]

REACTIONS (23)
  - BLADDER DISCOMFORT [None]
  - CATHETER SEPSIS [None]
  - DEPRESSION [None]
  - DIABETES MELLITUS [None]
  - ESCHERICHIA SEPSIS [None]
  - ESCHERICHIA URINARY TRACT INFECTION [None]
  - FAILURE TO THRIVE [None]
  - GASTRITIS [None]
  - HYPERLIPIDAEMIA [None]
  - HYPERTENSION [None]
  - INCISIONAL HERNIA [None]
  - INGUINAL MASS [None]
  - INTESTINAL STENOSIS [None]
  - MALAISE [None]
  - NAUSEA [None]
  - OEDEMA PERIPHERAL [None]
  - OSTEOPOROSIS [None]
  - POSTOPERATIVE ADHESION [None]
  - PROSTATE CANCER [None]
  - PROSTATITIS [None]
  - RESORPTION BONE INCREASED [None]
  - URINARY TRACT INFECTION FUNGAL [None]
  - WEIGHT INCREASED [None]
